FAERS Safety Report 25447165 (Version 1)
Quarter: 2025Q2

REPORT INFORMATION
  Report Type: Spontaneous
  Country: US (occurrence: US)
  Receive Date: 20250617
  Receipt Date: 20250617
  Transmission Date: 20250716
  Serious: No
  Sender: SANOFI AVENTIS
  Company Number: US-SA-2025SA166628

PATIENT
  Age: 61 Year
  Sex: Female

DRUGS (5)
  1. KEVZARA [Suspect]
     Active Substance: SARILUMAB
     Indication: Rheumatoid arthritis
     Dosage: 200 MG, QOW
     Route: 058
     Dates: start: 202501
  2. METHOTREXATE [Suspect]
     Active Substance: METHOTREXATE
     Indication: Mobility decreased
     Dates: start: 202505
  3. METHOTREXATE [Suspect]
     Active Substance: METHOTREXATE
     Indication: Arthritis
  4. METHOTREXATE [Suspect]
     Active Substance: METHOTREXATE
     Indication: Arthralgia
  5. METHOTREXATE [Suspect]
     Active Substance: METHOTREXATE
     Indication: Swollen joint count increased

REACTIONS (5)
  - Swollen joint count increased [Unknown]
  - Arthralgia [Unknown]
  - Arthritis [Unknown]
  - Mobility decreased [Unknown]
  - Illness [Unknown]

NARRATIVE: CASE EVENT DATE: 20250501
